FAERS Safety Report 5930678-2 (Version None)
Quarter: 2008Q4

REPORT INFORMATION
  Report Type: 
  Country: None (occurrence: None)
  Receive Date: 20081027
  Receipt Date: 20081016
  Transmission Date: 20090506
  Serious: Yes (Hospitalization)
  Sender: FDA-Public Use
  Company Number: IE-BRISTOL-MYERS SQUIBB COMPANY-14311674

PATIENT
  Age: 72 Year
  Sex: Female

DRUGS (8)
  1. CETUXIMAB [Suspect]
     Indication: BREAST CANCER METASTATIC
     Dosage: STUDY MEDICATION STARTED ON 05-AUG-2008; MOST RECENT INFUSION ON 12AUG08.
     Route: 041
     Dates: start: 20080805
  2. CISPLATIN [Suspect]
     Indication: BREAST CANCER METASTATIC
     Dosage: STUDY MEDICATION STARTED IN 05-AUG-2008.
     Route: 042
     Dates: start: 20080805, end: 20080805
  3. EMCOR [Concomitant]
     Route: 048
  4. CENTYL K [Concomitant]
     Dosage: 1 DOSAGE FORM = 1 TAB
     Route: 048
  5. ASPIRIN [Concomitant]
     Route: 048
  6. ISTIN [Concomitant]
     Route: 048
  7. CORDAREX [Concomitant]
     Dosage: 1 DOSAGE FORM = 7 TABLETS
     Route: 048
  8. AUGMENTIN '125' [Concomitant]
     Route: 048
     Dates: start: 20080814, end: 20080816

REACTIONS (3)
  - COUGH [None]
  - DYSPHONIA [None]
  - PYREXIA [None]
